FAERS Safety Report 5681124-8 (Version None)
Quarter: 2008Q1

REPORT INFORMATION
  Report Type: 
  Country: None (occurrence: None)
  Receive Date: 20080326
  Receipt Date: 20080312
  Transmission Date: 20080703
  Serious: Yes (Hospitalization, Other)
  Sender: FDA-Public Use
  Company Number: FABR-10759

PATIENT
  Age: 41 Year
  Sex: Male
  Weight: 50 kg

DRUGS (9)
  1. FABRAZYME [Suspect]
     Indication: FABRY'S DISEASE
     Dosage: 50 MG, Q2W, INTRAVENOUS
     Route: 042
     Dates: start: 20040716
  2. CELESTAMINE TAB [Concomitant]
  3. DICLOFENAC SODIUM [Concomitant]
  4. LACTOMIN (LACTOBACILLUS SPOROGENES) [Concomitant]
  5. SEVELAMER HYDROCHLORIDE (SEVELAMER HYDROCHLORIDE) [Concomitant]
  6. CARBAMAZEPINE [Concomitant]
  7. PRECIPITATED CALCIUM CARBONATE [Concomitant]
  8. FAMOTIDINE [Concomitant]
  9. AK-SOLITA-DP [Concomitant]

REACTIONS (8)
  - ASTHENIA [None]
  - CONDITION AGGRAVATED [None]
  - DEATH OF RELATIVE [None]
  - DELIRIUM [None]
  - DIZZINESS [None]
  - ISCHAEMIC STROKE [None]
  - PSYCHOTIC DISORDER [None]
  - VASCULAR CALCIFICATION [None]
